FAERS Safety Report 7024937-2 (Version None)
Quarter: 2010Q3

REPORT INFORMATION
  Report Type: 
  Country: None (occurrence: None)
  Receive Date: 20100920
  Receipt Date: 20100520
  Transmission Date: 20110219
  Serious: Yes (Hospitalization, Other)
  Sender: FDA-Public Use
  Company Number: 2010057711

PATIENT
  Age: 54 Year
  Sex: Female

DRUGS (2)
  1. DILANTIN-125 [Suspect]
     Indication: CONVULSION
     Dosage: 260 MG, 2X/DAY, MORNING AND EVENING
  2. DILANTIN [Suspect]
     Dosage: 30 MGM, UNK

REACTIONS (1)
  - STEVENS-JOHNSON SYNDROME [None]
